FAERS Safety Report 13089005 (Version 1)
Quarter: 2017Q1

REPORT INFORMATION
  Report Type: Spontaneous
  Country: US (occurrence: US)
  Receive Date: 20170104
  Receipt Date: 20170104
  Transmission Date: 20170428
  Serious: Yes (Hospitalization)
  Sender: FDA-Public Use
  Company Number: None

PATIENT
  Age: 52 Year
  Sex: Female
  Weight: 47.8 kg

DRUGS (8)
  1. VITAMIN D2 [Concomitant]
     Active Substance: ERGOCALCIFEROL
  2. FAMOTIDINE. [Concomitant]
     Active Substance: FAMOTIDINE
  3. DAPSONE. [Suspect]
     Active Substance: DAPSONE
     Indication: ANTIFUNGAL PROPHYLAXIS
     Route: 048
     Dates: start: 20160710, end: 20160802
  4. DAPSONE. [Suspect]
     Active Substance: DAPSONE
     Indication: NEUTROPENIA
     Route: 048
     Dates: start: 20160710, end: 20160802
  5. SODIUM CHLORIDE. [Concomitant]
     Active Substance: SODIUM CHLORIDE
  6. DEXAMETHASONE. [Concomitant]
     Active Substance: DEXAMETHASONE
  7. ACYCLOVIR. [Concomitant]
     Active Substance: ACYCLOVIR
  8. ERGOCALCIFEROL. [Concomitant]
     Active Substance: ERGOCALCIFEROL

REACTIONS (4)
  - Blood methaemoglobin present [None]
  - Infection [None]
  - Pyrexia [None]
  - Oxygen saturation decreased [None]

NARRATIVE: CASE EVENT DATE: 20160802
